FAERS Safety Report 25860570 (Version 3)
Quarter: 2025Q4

REPORT INFORMATION
  Report Type: Report from Study
  Country: US (occurrence: US)
  Receive Date: 20250929
  Receipt Date: 20251019
  Transmission Date: 20260118
  Serious: Yes (Other)
  Sender: ABBVIE
  Company Number: US-ABBVIE-6474860

PATIENT
  Sex: Female

DRUGS (1)
  1. CREON [Suspect]
     Active Substance: PANCRELIPASE AMYLASE\PANCRELIPASE LIPASE\PANCRELIPASE PROTEASE
     Indication: Pancreatic failure
     Route: 048
     Dates: start: 20240928, end: 20250917

REACTIONS (7)
  - Cerebrovascular accident [Unknown]
  - Illness [Not Recovered/Not Resolved]
  - Seizure [Recovered/Resolved]
  - Pancreatic disorder [Unknown]
  - Feeding disorder [Not Recovered/Not Resolved]
  - Stress [Unknown]
  - Weight decreased [Not Recovered/Not Resolved]

NARRATIVE: CASE EVENT DATE: 20250101
